FAERS Safety Report 9547545 (Version 1)
Quarter: 2013Q2

REPORT INFORMATION
  Report Type: Spontaneous
  Country: US (occurrence: None)
  Receive Date: 20130606
  Receipt Date: 20130606
  Transmission Date: 20140414
  Serious: No
  Sender: FDA-Public Use
  Company Number: 163-POMAL-13050887

PATIENT
  Age: 86 Year
  Sex: Female

DRUGS (9)
  1. POMALYST (POMALIDOMIDE) (4 MILLIGRAM, CAPSULES) [Suspect]
     Indication: PLASMA CELL MYELOMA
     Route: 048
     Dates: start: 20130314
  2. ASPIRINE (ACETYLSALICYLIC ACID) [Concomitant]
  3. BISOPROLOL FUMARATE [Concomitant]
  4. CRESTOR (ROSUVASTATIN) [Concomitant]
  5. DEXAMETHASONE [Concomitant]
  6. MULTIVITAMINS [Concomitant]
  7. OMEPRAZOLE [Concomitant]
  8. TOPIRAMATE [Concomitant]
  9. VITAMIN B-12 (CYANOCOBALAMIN) [Concomitant]

REACTIONS (1)
  - Neuropathy peripheral [None]
